FAERS Safety Report 9399798 (Version 4)
Quarter: 2014Q3

REPORT INFORMATION
  Report Type: Report from Study
  Country: PT (occurrence: PT)
  Receive Date: 20130715
  Receipt Date: 20140709
  Transmission Date: 20150326
  Serious: Yes (Hospitalization, Other)
  Sender: FDA-Public Use
  Company Number: PHHY2013PT057649

PATIENT
  Age: 47 Year
  Sex: Female

DRUGS (8)
  1. KEPPRA [Concomitant]
     Active Substance: LEVETIRACETAM
     Dosage: UNK UKN, UNK
  2. EXTAVIA [Suspect]
     Active Substance: INTERFERON BETA-1B
     Indication: MULTIPLE SCLEROSIS
     Dosage: 250 UG, UNK
     Route: 058
     Dates: start: 20130117, end: 20130530
  3. LORENIN [Concomitant]
     Active Substance: LORAZEPAM
     Dosage: UNK UKN, UNK
  4. NOLOTIL                                 /SPA/ [Concomitant]
     Active Substance: METAMIZOLE
     Dosage: UNK UKN, UNK
  5. OMEPRAZOLE. [Concomitant]
     Active Substance: OMEPRAZOLE
     Dosage: UNK UKN, UNK
  6. EXTAVIA [Suspect]
     Active Substance: INTERFERON BETA-1B
     Dosage: UNK UKN, UNK
     Dates: start: 20140423
  7. GABAPENTINA [Concomitant]
     Active Substance: GABAPENTIN
     Dosage: UNK UKN, UNK
  8. TRAZADOL [Concomitant]
     Dosage: UNK UKN, UNK

REACTIONS (15)
  - Multiple sclerosis relapse [Recovered/Resolved]
  - Headache [Recovering/Resolving]
  - Visual acuity reduced [Not Recovered/Not Resolved]
  - Malaise [Unknown]
  - Dysarthria [Unknown]
  - Hemiplegia [Unknown]
  - Urinary retention [Recovered/Resolved]
  - Hypoaesthesia [Recovered/Resolved]
  - Paraesthesia [Recovering/Resolving]
  - Nausea [Unknown]
  - Syncope [Unknown]
  - Hypotension [Not Recovered/Not Resolved]
  - Convulsion [Unknown]
  - Asthenia [Recovered/Resolved]
  - Central nervous system lesion [Not Recovered/Not Resolved]

NARRATIVE: CASE EVENT DATE: 20130528
